FAERS Safety Report 13741091 (Version 2)
Quarter: 2017Q4

REPORT INFORMATION
  Report Type: Spontaneous
  Country: US (occurrence: US)
  Receive Date: 20170711
  Receipt Date: 20171213
  Transmission Date: 20180320
  Serious: Yes (Other)
  Sender: FDA-Public Use
  Company Number: US-SUN PHARMACEUTICAL INDUSTRIES LTD-2017US-144908

PATIENT
  Age: 50 Year
  Sex: Male

DRUGS (8)
  1. TRIMETHOPRIM-SULFAMETHOXAZOLE [Concomitant]
     Active Substance: SULFAMETHOXAZOLE\TRIMETHOPRIM
     Indication: BRAIN ABSCESS
     Dosage: 5 MG/KG, TID
     Route: 042
  2. LINEZOLID. [Concomitant]
     Active Substance: LINEZOLID
     Indication: NOCARDIOSIS
  3. DEXAMETHASONE. [Suspect]
     Active Substance: DEXAMETHASONE
     Indication: NOCARDIOSIS
  4. IMIPENEM [Concomitant]
     Active Substance: IMIPENEM
     Indication: BRAIN ABSCESS
     Dosage: 500 MG, TID
     Route: 042
  5. IMIPENEM [Concomitant]
     Active Substance: IMIPENEM
     Indication: NOCARDIOSIS
  6. LINEZOLID. [Concomitant]
     Active Substance: LINEZOLID
     Indication: BRAIN ABSCESS
     Dosage: 600 MG, BID
     Route: 042
  7. DEXAMETHASONE. [Suspect]
     Active Substance: DEXAMETHASONE
     Indication: BRAIN ABSCESS
     Dosage: 6 MG, QID
     Route: 042
  8. TRIMETHOPRIM-SULFAMETHOXAZOLE [Concomitant]
     Active Substance: SULFAMETHOXAZOLE\TRIMETHOPRIM
     Indication: NOCARDIOSIS

REACTIONS (4)
  - Condition aggravated [Recovered/Resolved]
  - Vision blurred [Recovered/Resolved]
  - Steroid withdrawal syndrome [Recovered/Resolved]
  - Papilloedema [Recovered/Resolved]
